FAERS Safety Report 16907795 (Version 1)
Quarter: 2019Q4

REPORT INFORMATION
  Report Type: Report from Study
  Country: JP (occurrence: JP)
  Receive Date: 20191011
  Receipt Date: 20191011
  Transmission Date: 20200122
  Serious: Yes (Other)
  Sender: FDA-Public Use
  Company Number: JP-INDIVIOR LIMTED-INDV-114573-2018

PATIENT
  Age: 62 Year
  Sex: Male

DRUGS (1)
  1. LEPETAN SUPPOSITORY [Suspect]
     Active Substance: BUPRENORPHINE HYDROCHLORIDE
     Indication: WOUND COMPLICATION
     Dosage: 0.2 MILLIGRAM, UNKNOWN
     Route: 054

REACTIONS (3)
  - Delirium [Recovered/Resolved]
  - Product use in unapproved indication [Recovered/Resolved]
  - Somnolence [Recovered/Resolved]
